FAERS Safety Report 12288409 (Version 1)
Quarter: 2016Q2

REPORT INFORMATION
  Report Type: Spontaneous
  Country: IT (occurrence: IT)
  Receive Date: 20160420
  Receipt Date: 20160420
  Transmission Date: 20160815
  Serious: Yes (Other)
  Sender: FDA-Public Use
  Company Number: PHHY2016IT050827

PATIENT
  Age: 31 Year
  Sex: Female

DRUGS (1)
  1. TEGRETOL [Suspect]
     Active Substance: CARBAMAZEPINE
     Indication: PRODUCT USED FOR UNKNOWN INDICATION
     Dosage: 400 MG, UNK
     Route: 065

REACTIONS (13)
  - Agitation [Unknown]
  - White blood cell count decreased [Unknown]
  - Psychotic disorder [Unknown]
  - Helplessness [Unknown]
  - Fatigue [Unknown]
  - Depression [Unknown]
  - Hallucination, auditory [Unknown]
  - Weight increased [Unknown]
  - Somnolence [Unknown]
  - Hypoaesthesia [Unknown]
  - Hormone level abnormal [Unknown]
  - Speech disorder [Unknown]
  - Fear [Unknown]
